FAERS Safety Report 24400160 (Version 4)
Quarter: 2024Q4

REPORT INFORMATION
  Report Type: Report from Study
  Country: US (occurrence: US)
  Receive Date: 20241005
  Receipt Date: 20241125
  Transmission Date: 20250115
  Serious: Yes (Other)
  Sender: TAKEDA
  Company Number: US-TAKEDA-2024TUS097699

PATIENT
  Age: 68 Year
  Sex: Female

DRUGS (10)
  1. TEDUGLUTIDE [Suspect]
     Active Substance: TEDUGLUTIDE
     Indication: Short-bowel syndrome
     Dosage: 1 MILLIGRAM, 2/WEEK
     Dates: start: 20190724, end: 20220803
  2. TEDUGLUTIDE [Suspect]
     Active Substance: TEDUGLUTIDE
     Dosage: 1 MILLIGRAM, 4/WEEK
     Dates: start: 20220804
  3. TEDUGLUTIDE [Suspect]
     Active Substance: TEDUGLUTIDE
  4. TEDUGLUTIDE [Suspect]
     Active Substance: TEDUGLUTIDE
  5. MAGONATE [Concomitant]
     Indication: Hypovitaminosis
     Dosage: 500 MILLIGRAM, QD
     Dates: start: 20220121, end: 20221122
  6. MAGONATE [Concomitant]
     Indication: Mineral deficiency
  7. PANCRELIPASE [Concomitant]
     Active Substance: PANCRELIPASE
     Indication: Short-bowel syndrome
     Dosage: 36000 INTERNATIONAL UNIT, BID
     Dates: start: 20210505
  8. KLOR-CON [Concomitant]
     Active Substance: POTASSIUM CHLORIDE
     Indication: Short-bowel syndrome
     Dosage: 10 MILLIEQUIVALENT, 2/WEEK
     Dates: start: 20210505
  9. ZINCATE [Concomitant]
     Indication: Hypovitaminosis
     Dosage: 220 MILLIGRAM, QD
     Dates: start: 20200909
  10. ZINCATE [Concomitant]
     Indication: Mineral deficiency

REACTIONS (1)
  - Large intestine benign neoplasm [Recovered/Resolved]

NARRATIVE: CASE EVENT DATE: 20240924
